FAERS Safety Report 8334237-6 (Version None)
Quarter: 2012Q2

REPORT INFORMATION
  Report Type: 
  Country: None (occurrence: None)
  Receive Date: 20120503
  Receipt Date: 20120427
  Transmission Date: 20120825
  Serious: Yes (Hospitalization)
  Sender: FDA-Public Use
  Company Number: FR-GLAXOSMITHKLINE-B0798528A

PATIENT
  Sex: Female

DRUGS (2)
  1. NABUMETONE [Suspect]
     Indication: OSTEOARTHRITIS
     Route: 048
     Dates: start: 20120229, end: 20120313
  2. BETAMETHASONE [Suspect]
     Indication: OSTEOARTHRITIS
     Route: 061
     Dates: start: 20120229, end: 20120313

REACTIONS (3)
  - RASH ERYTHEMATOUS [None]
  - RASH MACULO-PAPULAR [None]
  - ISCHAEMIC STROKE [None]
